FAERS Safety Report 9645769 (Version 1)
Quarter: 2013Q4

REPORT INFORMATION
  Report Type: Spontaneous
  Country: US (occurrence: None)
  Receive Date: 20131023
  Receipt Date: 20131023
  Transmission Date: 20140711
  Serious: Yes (Other)
  Sender: FDA-Public Use
  Company Number: 2013-US-001949

PATIENT
  Age: 17 Year
  Sex: Female

DRUGS (6)
  1. XYREM [Suspect]
     Indication: NARCOLEPSY
     Route: 048
     Dates: start: 20120222, end: 2012
  2. EFFEXOR XR(VENLAFAXINE HYDROCHLORIDE) [Concomitant]
  3. PROVIGIL (MODAFINIL) [Concomitant]
  4. SPIRINTEC (ETHINYLESTRADIOL, NORGESTIMATE) [Concomitant]
  5. RISPERDAL(RISPERIDONE) [Concomitant]
  6. AMITRIPTYLINE HCL(AMITRIPTYLINE HYDROCHLORIDE) [Concomitant]

REACTIONS (2)
  - Hallucination [None]
  - Anxiety [None]
